FAERS Safety Report 23285754 (Version 2)
Quarter: 2023Q4

REPORT INFORMATION
  Report Type: Spontaneous
  Country: EG (occurrence: EG)
  Receive Date: 20231212
  Receipt Date: 20231215
  Transmission Date: 20240110
  Serious: Yes (Other)
  Sender: FDA-Public Use
  Company Number: EG-PFIZER INC-PV202300195743

PATIENT
  Age: 58 Year
  Sex: Male

DRUGS (4)
  1. VINCRISTINE SULFATE [Suspect]
     Active Substance: VINCRISTINE SULFATE
     Indication: T-cell lymphoma
     Dosage: 1.4 MG/M2, EVERY 3 WEEKS (INFUSION ON DAY 1)
     Route: 042
  2. DOXORUBICIN [Suspect]
     Active Substance: DOXORUBICIN
     Indication: T-cell lymphoma
     Dosage: 50 MG/M2, EVERY 3 WEEKS
  3. CYCLOPHOSPHAMIDE [Suspect]
     Active Substance: CYCLOPHOSPHAMIDE
     Indication: T-cell lymphoma
     Dosage: 750 MG/M2, EVERY 3 WEEKS
  4. ETOPOSIDE [Suspect]
     Active Substance: ETOPOSIDE
     Indication: T-cell lymphoma
     Dosage: 100 MG/M2, EVERY 3 WEEKS (DAYS 1-3)
     Route: 042

REACTIONS (1)
  - Myelosuppression [Unknown]
